FAERS Safety Report 9258848 (Version 3)
Quarter: 2013Q4

REPORT INFORMATION
  Report Type: Report from Study
  Country: US (occurrence: US)
  Receive Date: 20130426
  Receipt Date: 20131028
  Transmission Date: 20140711
  Serious: Yes (Other)
  Sender: FDA-Public Use
  Company Number: US-GLAXOSMITHKLINE-A1021236A

PATIENT
  Age: 61 Year
  Sex: Female
  Weight: 59.3 kg

DRUGS (10)
  1. ELTROMBOPAG [Suspect]
     Indication: THROMBOCYTOPENIA
     Dosage: 50MG PER DAY
     Route: 048
     Dates: start: 20120717, end: 20130409
  2. INVESTIGATIONAL STUDY DRUG [Suspect]
     Indication: THROMBOCYTOPENIA
     Dosage: 20MG PER DAY
     Route: 048
     Dates: start: 20120918, end: 20130225
  3. ROMIPLOSTIM [Concomitant]
     Dates: start: 20130225
  4. IVIG [Concomitant]
     Dosage: 60G AS REQUIRED
     Dates: start: 20130225
  5. AMINOCAPROIC ACID [Concomitant]
  6. ATENOLOL [Concomitant]
     Dosage: 50MG PER DAY
     Route: 048
     Dates: start: 2000
  7. B COMPLEX [Concomitant]
     Dosage: 1TAB PER DAY
  8. BUTALBITAL/APAP/CAFFEINE [Concomitant]
  9. CALCIUM D [Concomitant]
     Dosage: 1TAB PER DAY
  10. MULTIVITAMIN [Concomitant]
     Dosage: 1TAB PER DAY

REACTIONS (1)
  - Bone marrow reticulin fibrosis [Recovering/Resolving]
